FAERS Safety Report 5679437-9 (Version None)
Quarter: 2008Q1

REPORT INFORMATION
  Report Type: 
  Country: None (occurrence: None)
  Receive Date: 20080325
  Receipt Date: 20080314
  Transmission Date: 20080703
  Serious: Yes (Life-Threatening, Hospitalization)
  Sender: FDA-Public Use
  Company Number: US-PFIZER INC-2008018783

PATIENT
  Age: 70 Year
  Sex: Female
  Weight: 67 kg

DRUGS (1)
  1. AROMASIN [Suspect]
     Indication: BREAST CANCER
     Route: 048
     Dates: start: 20040806, end: 20070510

REACTIONS (7)
  - CEREBRAL ISCHAEMIA [None]
  - COUGH [None]
  - DEPRESSION [None]
  - DYSPNOEA [None]
  - HEMIPARESIS [None]
  - MUSCULAR WEAKNESS [None]
  - SPEECH DISORDER [None]
